FAERS Safety Report 5880568-9 (Version None)
Quarter: 2008Q3

REPORT INFORMATION
  Report Type: 
  Country: None (occurrence: None)
  Receive Date: 20080912
  Receipt Date: 20080626
  Transmission Date: 20090109
  Serious: No
  Sender: FDA-Public Use
  Company Number: US-ABBOTT-08P-163-0454763-00

PATIENT
  Sex: Male
  Weight: 74.456 kg

DRUGS (8)
  1. HUMIRA [Suspect]
     Indication: PSORIATIC ARTHROPATHY
     Route: 058
     Dates: start: 20060101
  2. HUMIRA [Suspect]
     Indication: SPONDYLITIS
  3. BACLOFEN [Concomitant]
     Indication: MUSCLE SPASMS
     Route: 048
     Dates: start: 20040101
  4. LEVOTHYROXINE SODIUM [Concomitant]
     Indication: HYPOTHYROIDISM
     Route: 048
     Dates: start: 20060101
  5. PANTOPRAZOLE [Concomitant]
     Indication: OROPHARYNGEAL PAIN
     Route: 048
     Dates: start: 20080301
  6. PANTOPRAZOLE [Concomitant]
     Indication: GASTROOESOPHAGEAL REFLUX DISEASE
  7. ZOLPIDEM TARTRATE [Concomitant]
     Indication: PAIN
     Dosage: QHS
     Route: 048
     Dates: start: 20080301
  8. LISINOPRIL [Concomitant]
     Indication: DRUG USE FOR UNKNOWN INDICATION
     Dosage: 1 TAB QD QHS
     Route: 048

REACTIONS (11)
  - ARTHRALGIA [None]
  - FEELING ABNORMAL [None]
  - HOT FLUSH [None]
  - HYPERTENSION [None]
  - HYPOAESTHESIA [None]
  - LETHARGY [None]
  - MUSCULOSKELETAL PAIN [None]
  - NECK PAIN [None]
  - OROPHARYNGEAL PAIN [None]
  - PAIN IN EXTREMITY [None]
  - VIRAL INFECTION [None]
